FAERS Safety Report 11297784 (Version 1)
Quarter: 2015Q3

REPORT INFORMATION
  Report Type: Spontaneous
  Country: US (occurrence: US)
  Receive Date: 20150722
  Receipt Date: 20150722
  Transmission Date: 20151125
  Serious: No
  Sender: FDA-Public Use
  Company Number: US-ELI_LILLY_AND_COMPANY-US200911003629

PATIENT
  Age: 11 Year
  Sex: Female

DRUGS (1)
  1. HUMATROPE [Suspect]
     Active Substance: SOMATROPIN
     Dates: start: 20080630

REACTIONS (5)
  - Pyrexia [Recovering/Resolving]
  - Drug dose omission [Unknown]
  - Cough [Recovering/Resolving]
  - Influenza [Unknown]
  - Malaise [Unknown]

NARRATIVE: CASE EVENT DATE: 20091110
